FAERS Safety Report 25876606 (Version 2)
Quarter: 2025Q4

REPORT INFORMATION
  Report Type: Spontaneous
  Country: ID (occurrence: ID)
  Receive Date: 20251003
  Receipt Date: 20251008
  Transmission Date: 20260117
  Serious: Yes (Other)
  Sender: BAXTER
  Company Number: ID-BAXTER-2025BAX021975

PATIENT
  Age: 50 Year
  Sex: Female

DRUGS (3)
  1. IFOSFAMIDE [Suspect]
     Active Substance: IFOSFAMIDE
     Indication: Lung neoplasm malignant
     Dosage: HOLOXAN 1,5 G/M2, (PLANNED: DAY 1 TO DAY 4), FIRST CYCLE
     Route: 065
     Dates: start: 20250925, end: 20250925
  2. DOXORUBICIN [Suspect]
     Active Substance: DOXORUBICIN
     Indication: Lung neoplasm malignant
     Dosage: 25 MG/M2, FIRST CYCLE
     Route: 065
     Dates: start: 20250925, end: 20250925
  3. MESNA [Suspect]
     Active Substance: MESNA
     Indication: Lung neoplasm malignant
     Dosage: FIRST CYCLE
     Route: 065
     Dates: start: 20250925, end: 20250925

REACTIONS (2)
  - Seizure [Recovering/Resolving]
  - Dyspnoea [Recovering/Resolving]

NARRATIVE: CASE EVENT DATE: 20250925
